FAERS Safety Report 24066682 (Version 1)
Quarter: 2024Q3

REPORT INFORMATION
  Report Type: Report from Study
  Country: AU (occurrence: AU)
  Receive Date: 20240709
  Receipt Date: 20240709
  Transmission Date: 20241017
  Serious: Yes (Other)
  Sender: ROCHE
  Company Number: AU-ROCHE-3474280

PATIENT
  Age: 43 Year
  Sex: Female

DRUGS (2)
  1. OCREVUS [Suspect]
     Active Substance: OCRELIZUMAB
     Indication: Multiple sclerosis
     Route: 042
     Dates: start: 20231211
  2. OCREVUS [Suspect]
     Active Substance: OCRELIZUMAB
     Route: 042
     Dates: start: 20240617

REACTIONS (5)
  - Fall [Unknown]
  - Plantar fasciitis [Recovered/Resolved]
  - Respiratory syncytial virus infection [Recovered/Resolved]
  - Peroneal nerve palsy [Not Recovered/Not Resolved]
  - Asthenia [Not Recovered/Not Resolved]
